FAERS Safety Report 19380709 (Version 1)
Quarter: 2021Q2

REPORT INFORMATION
  Report Type: Spontaneous
  Country: US (occurrence: US)
  Receive Date: 20210604
  Receipt Date: 20210604
  Transmission Date: 20210717
  Serious: Yes (Hospitalization)
  Sender: FDA-Public Use
  Company Number: None

PATIENT
  Age: 31 Year
  Sex: Male
  Weight: 99.45 kg

DRUGS (1)
  1. HALOPERIDOL. [Suspect]
     Active Substance: HALOPERIDOL
     Indication: AFFECTIVE DISORDER
     Route: 048
     Dates: start: 20210423, end: 20210424

REACTIONS (2)
  - Anxiety [None]
  - Vomiting [None]

NARRATIVE: CASE EVENT DATE: 20210424
